FAERS Safety Report 6077767-2 (Version None)
Quarter: 2009Q1

REPORT INFORMATION
  Report Type: 
  Country: None (occurrence: None)
  Receive Date: 20090213
  Receipt Date: 20090205
  Transmission Date: 20090719
  Serious: Yes (Other)
  Sender: FDA-Public Use
  Company Number: FR-PFIZER INC-2009150601

PATIENT

DRUGS (5)
  1. LYRICA [Suspect]
     Indication: NEURALGIA
     Dosage: UNK
     Route: 048
  2. RIVOTRIL [Concomitant]
  3. LEVOTHYROX [Concomitant]
  4. SPIRONOLACTONE [Concomitant]
  5. ACTONEL [Concomitant]

REACTIONS (3)
  - DISTURBANCE IN ATTENTION [None]
  - HAEMATOMA [None]
  - ROAD TRAFFIC ACCIDENT [None]
